FAERS Safety Report 4438767-9 (Version None)
Quarter: 2004Q3

REPORT INFORMATION
  Report Type: 
  Country: None (occurrence: None)
  Receive Date: 20040901
  Receipt Date: 20040819
  Transmission Date: 20050211
  Serious: Yes (Hospitalization)
  Sender: FDA-Public Use
  Company Number: FR-BRISTOL-MYERS SQUIBB COMPANY-12676789

PATIENT
  Age: 57 Year
  Sex: Male

DRUGS (3)
  1. COUMADIN [Suspect]
     Route: 048
     Dates: start: 20031215, end: 20040620
  2. ETOPOSIDE [Suspect]
     Route: 048
     Dates: start: 20031030, end: 20040617
  3. CARBOPLATINE [Concomitant]
     Dates: start: 20031030, end: 20040315

REACTIONS (3)
  - DYSPNOEA [None]
  - INTERSTITIAL LUNG DISEASE [None]
  - PYREXIA [None]
